FAERS Safety Report 17911513 (Version 1)
Quarter: 2020Q2

REPORT INFORMATION
  Report Type: Spontaneous
  Country: PL (occurrence: PL)
  Receive Date: 20200618
  Receipt Date: 20200618
  Transmission Date: 20200714
  Serious: Yes (Life-Threatening)
  Sender: FDA-Public Use
  Company Number: PL-EMCURE PHARMACEUTICALS LTD-2020-EPL-000752

PATIENT
  Age: 53 Year
  Sex: Female

DRUGS (2)
  1. ETAMSYLATE [Suspect]
     Active Substance: ETHAMSYLATE
     Indication: ANTICOAGULANT THERAPY
     Dosage: UNK
  2. TRANEXAMIC ACID. [Suspect]
     Active Substance: TRANEXAMIC ACID
     Indication: ANTICOAGULANT THERAPY
     Dosage: UNK

REACTIONS (1)
  - Drug ineffective [Unknown]
